FAERS Safety Report 13979731 (Version 1)
Quarter: 2017Q3

REPORT INFORMATION
  Report Type: Spontaneous
  Country: US (occurrence: US)
  Receive Date: 20170914
  Receipt Date: 20170914
  Transmission Date: 20171128
  Serious: No
  Sender: FDA-Public Use
  Company Number: US-ASTELLAS-2017US025339

PATIENT
  Age: 67 Year
  Sex: Male

DRUGS (1)
  1. XTANDI [Suspect]
     Active Substance: ENZALUTAMIDE
     Indication: PROSTATE CANCER
     Route: 048
     Dates: start: 20170307

REACTIONS (6)
  - Abdominal distension [Unknown]
  - Nausea [Unknown]
  - Constipation [Unknown]
  - Gastrointestinal disorder [Unknown]
  - Restlessness [Unknown]
  - Anxiety [Unknown]
